FAERS Safety Report 9768295 (Version 1)
Quarter: 2013Q4

REPORT INFORMATION
  Report Type: Spontaneous
  Country: DK (occurrence: CA)
  Receive Date: 20131217
  Receipt Date: 20131217
  Transmission Date: 20140711
  Serious: Yes (Other)
  Sender: FDA-Public Use
  Company Number: CA-FRI-1000052285

PATIENT
  Sex: Male
  Weight: 64 kg

DRUGS (2)
  1. ESCITALOPRAM [Suspect]
     Indication: DEPRESSION
     Route: 048
  2. ESCITALOPRAM [Suspect]
     Route: 048

REACTIONS (8)
  - Diarrhoea haemorrhagic [Recovered/Resolved]
  - Feeling abnormal [Recovered/Resolved]
  - Insomnia [Recovered/Resolved]
  - Diarrhoea [Not Recovered/Not Resolved]
  - Fatigue [Recovered/Resolved]
  - Coordination abnormal [Recovered/Resolved]
  - Sexual dysfunction [Recovered/Resolved]
  - Emotional disorder [Recovered/Resolved]
